FAERS Safety Report 8580127-3 (Version None)
Quarter: 2012Q3

REPORT INFORMATION
  Report Type: 
  Country: None (occurrence: None)
  Receive Date: 20120808
  Receipt Date: 20120803
  Transmission Date: 20120928
  Serious: Yes (Other)
  Sender: FDA-Public Use
  Company Number: US-PFIZER INC-2012086717

PATIENT
  Age: 86 Year
  Sex: Female
  Weight: 68.027 kg

DRUGS (3)
  1. LIPITOR [Suspect]
     Indication: BLOOD CHOLESTEROL INCREASED
     Dosage: 10 MG, 1X/DAY
     Route: 048
     Dates: start: 20040101
  2. NAMENDA [Concomitant]
     Dosage: UNK
  3. ZETIA [Concomitant]
     Dosage: UNK

REACTIONS (3)
  - HYPERTENSION [None]
  - HIP FRACTURE [None]
  - FALL [None]
